FAERS Safety Report 8362067-8 (Version None)
Quarter: 2012Q2

REPORT INFORMATION
  Report Type: 
  Country: None (occurrence: None)
  Receive Date: 20120515
  Receipt Date: 20120511
  Transmission Date: 20120825
  Serious: Yes (Other)
  Sender: FDA-Public Use
  Company Number: DE-ROCHE-1068681

PATIENT
  Age: 48 Year
  Sex: Male

DRUGS (2)
  1. INVIRASE [Suspect]
     Indication: PRODUCT USED FOR UNKNOWN INDICATION
     Route: 065
  2. KALETRA [Concomitant]

REACTIONS (4)
  - BLOOD OESTROGEN DECREASED [None]
  - BLOOD CHOLESTEROL DECREASED [None]
  - BLOOD TESTOSTERONE DECREASED [None]
  - BLOOD CORTISOL DECREASED [None]
